FAERS Safety Report 13209876 (Version 1)
Quarter: 2017Q1

REPORT INFORMATION
  Report Type: Spontaneous
  Country: US (occurrence: US)
  Receive Date: 20170209
  Receipt Date: 20170209
  Transmission Date: 20170428
  Serious: No
  Sender: FDA-Public Use
  Company Number: US-ALLERGAN-1600276US

PATIENT
  Age: 42 Year
  Sex: Female
  Weight: 45.35 kg

DRUGS (2)
  1. BACLOFEN. [Concomitant]
     Active Substance: BACLOFEN
     Indication: PAIN
  2. BOTOX [Suspect]
     Active Substance: ONABOTULINUMTOXINA
     Indication: MIGRAINE
     Dosage: 150 UNITS, SINGLE
     Route: 030
     Dates: start: 20151008, end: 20151008

REACTIONS (10)
  - Eye swelling [Recovered/Resolved]
  - Hot flush [Recovered/Resolved]
  - Myalgia [Recovered/Resolved]
  - Fatigue [Recovered/Resolved]
  - Bed rest [Recovered/Resolved]
  - Dysphagia [Recovered/Resolved]
  - Muscular weakness [Recovered/Resolved]
  - Throat tightness [Recovered/Resolved]
  - Swelling face [Recovered/Resolved]
  - Anxiety [Recovered/Resolved]

NARRATIVE: CASE EVENT DATE: 20151010
